FAERS Safety Report 18879202 (Version 1)
Quarter: 2021Q1

REPORT INFORMATION
  Report Type: Spontaneous
  Country: CA (occurrence: CA)
  Receive Date: 20210211
  Receipt Date: 20210211
  Transmission Date: 20210420
  Serious: Yes (Other)
  Sender: FDA-Public Use
  Company Number: CA-TEVA-2021-CA-1878828

PATIENT
  Age: 29 Year
  Sex: Female

DRUGS (1)
  1. FLUCONAZOLE. [Suspect]
     Active Substance: FLUCONAZOLE
     Indication: ENDOCARDITIS CANDIDA
     Route: 065

REACTIONS (3)
  - Pathogen resistance [Unknown]
  - Off label use [Unknown]
  - Product use in unapproved indication [Unknown]
